FAERS Safety Report 4677374-X (Version None)
Quarter: 2005Q2

REPORT INFORMATION
  Report Type: 
  Country: None (occurrence: None)
  Receive Date: 20050531
  Receipt Date: 20050523
  Transmission Date: 20051028
  Serious: Yes (Other)
  Sender: FDA-Public Use
  Company Number: 200514464US

PATIENT
  Age: 54 Year
  Sex: Male

DRUGS (7)
  1. DDAVP [Suspect]
     Indication: ENURESIS
     Dosage: DOSE: UNK
     Dates: start: 20041001
  2. ATENOLOL [Concomitant]
  3. LISINOPRIL [Concomitant]
  4. NORVASC [Concomitant]
  5. NIASPAN [Concomitant]
     Dosage: DOSE: UNKNOWN
  6. PRAVACHOL [Concomitant]
     Dosage: DOSE: UNKNOWN
  7. PREMARIN [Concomitant]
     Dosage: DOSE: UNKNOWN

REACTIONS (2)
  - ENURESIS [None]
  - HYPERTENSION [None]
